FAERS Safety Report 9378148 (Version 4)
Quarter: 2013Q4

REPORT INFORMATION
  Report Type: Spontaneous
  Country: GB (occurrence: GB)
  Receive Date: 20130701
  Receipt Date: 20131202
  Transmission Date: 20140711
  Serious: Yes (Other)
  Sender: FDA-Public Use
  Company Number: GB-GLAXOSMITHKLINE-B0902591A

PATIENT
  Sex: Male

DRUGS (2)
  1. AVANDIA [Suspect]
     Indication: PRODUCT USED FOR UNKNOWN INDICATION
     Route: 065
  2. METFORMIN HYDROCHLORIDE + ROSIGLITAZONE MALEATE [Suspect]
     Indication: PRODUCT USED FOR UNKNOWN INDICATION
     Dosage: 2TAB TWICE PER DAY
     Route: 065
     Dates: start: 20050808, end: 20100909

REACTIONS (2)
  - Arterial stenosis [Unknown]
  - Coronary artery disease [Unknown]
